FAERS Safety Report 22384289 (Version 1)
Quarter: 2023Q2

REPORT INFORMATION
  Report Type: Spontaneous
  Country: JP (occurrence: JP)
  Receive Date: 20230530
  Receipt Date: 20230530
  Transmission Date: 20230721
  Serious: Yes (Other)
  Sender: FDA-Public Use
  Company Number: JP-BRISTOL-MYERS SQUIBB COMPANY-2023-075309

PATIENT
  Age: 7 Decade
  Sex: Male

DRUGS (5)
  1. REVLIMID [Suspect]
     Active Substance: LENALIDOMIDE
     Indication: Plasma cell myeloma refractory
  2. LENADEX [Suspect]
     Active Substance: DEXAMETHASONE ACETATE
     Indication: Plasma cell myeloma refractory
  3. VELCADE [Concomitant]
     Active Substance: BORTEZOMIB
     Indication: Plasma cell myeloma refractory
  4. DENOSUMAB [Concomitant]
     Active Substance: DENOSUMAB
     Indication: Plasma cell myeloma refractory
  5. FLUCONAZOLE [Concomitant]
     Active Substance: FLUCONAZOLE
     Indication: Plasma cell myeloma refractory

REACTIONS (2)
  - Blood lactate dehydrogenase increased [Not Recovered/Not Resolved]
  - Hepatic function abnormal [Not Recovered/Not Resolved]

NARRATIVE: CASE EVENT DATE: 20230522
